FAERS Safety Report 7134581-4 (Version None)
Quarter: 2010Q4

REPORT INFORMATION
  Report Type: 
  Country: None (occurrence: None)
  Receive Date: 20101203
  Receipt Date: 20101119
  Transmission Date: 20110411
  Serious: Yes (Other)
  Sender: FDA-Public Use
  Company Number: DE-JNJFOC-20101108290

PATIENT
  Sex: Female
  Weight: 65 kg

DRUGS (2)
  1. PALEXIA RETARD [Suspect]
     Indication: OSTEOARTHRITIS
     Dosage: 2X 100 MG, DAILY
     Route: 065
  2. TRANSTEC PRO [Concomitant]
     Route: 062

REACTIONS (5)
  - GASTROINTESTINAL INFLAMMATION [None]
  - GASTROINTESTINAL PAIN [None]
  - HYPERHIDROSIS [None]
  - PYREXIA [None]
  - RESTLESSNESS [None]
